FAERS Safety Report 24065358 (Version 1)
Quarter: 2024Q3

REPORT INFORMATION
  Report Type: Report from Study
  Country: GB (occurrence: GB)
  Receive Date: 20240709
  Receipt Date: 20240709
  Transmission Date: 20241017
  Serious: Yes (Hospitalization)
  Sender: EMD SERONO INC
  Company Number: GB-Merck Healthcare KGaA-2024036364

PATIENT
  Age: 35 Year
  Sex: Female

DRUGS (2)
  1. MAVENCLAD [Suspect]
     Active Substance: CLADRIBINE
     Indication: Multiple sclerosis
     Dosage: YEAR ONE WEEK ONE THERAPY. TWO TABLETS ON DAYS ONE TO FIVE.
     Route: 048
     Dates: start: 20240624, end: 20240628
  2. CODEINE [Suspect]
     Active Substance: CODEINE
     Indication: Arthralgia
     Route: 048

REACTIONS (2)
  - Chest pain [Unknown]
  - Presyncope [Unknown]

NARRATIVE: CASE EVENT DATE: 20240628
